FAERS Safety Report 6412132-7 (Version None)
Quarter: 2009Q4

REPORT INFORMATION
  Report Type: 
  Country: None (occurrence: None)
  Receive Date: 20091023
  Receipt Date: 20090827
  Transmission Date: 20100525
  Serious: Yes (Other)
  Sender: FDA-Public Use
  Company Number: TR-JNJFOC-20090900095

PATIENT
  Age: 8 Year
  Sex: Male
  Weight: 21.5 kg

DRUGS (2)
  1. CONCERTA [Suspect]
     Route: 048
  2. CONCERTA [Suspect]
     Indication: ATTENTION DEFICIT/HYPERACTIVITY DISORDER
     Route: 048

REACTIONS (10)
  - ABDOMINAL PAIN [None]
  - CONJUNCTIVAL DISORDER [None]
  - DECREASED APPETITE [None]
  - ERECTION INCREASED [None]
  - HEADACHE [None]
  - HYPERSEXUALITY [None]
  - PARAESTHESIA [None]
  - SLEEP DISORDER [None]
  - WEIGHT DECREASED [None]
  - WITHDRAWAL SYNDROME [None]
